FAERS Safety Report 15335076 (Version 3)
Quarter: 2018Q3

REPORT INFORMATION
  Report Type: Report from Study
  Country: US (occurrence: US)
  Receive Date: 20180830
  Receipt Date: 20180924
  Transmission Date: 20181010
  Serious: Yes (Hospitalization)
  Sender: FDA-Public Use
  Company Number: US-GILEAD-2018-0360363

PATIENT
  Age: 53 Year
  Sex: Male

DRUGS (22)
  1. PROMETHAZINE [Concomitant]
     Active Substance: PROMETHAZINE\PROMETHAZINE HYDROCHLORIDE
  2. TOLVAPTAN [Concomitant]
     Active Substance: TOLVAPTAN
  3. AMBRISENTAN [Suspect]
     Active Substance: AMBRISENTAN
     Indication: PULMONARY ARTERIAL HYPERTENSION
     Dosage: 10 MG, QD
     Route: 048
  4. GABAPENTIN. [Concomitant]
     Active Substance: GABAPENTIN
  5. ADCIRCA [Concomitant]
     Active Substance: TADALAFIL
     Dosage: 40 MG, QD
     Route: 065
     Dates: start: 201505
  6. DYMISTA [Concomitant]
     Active Substance: AZELASTINE HYDROCHLORIDE\FLUTICASONE PROPIONATE
  7. LASIX [Concomitant]
     Active Substance: FUROSEMIDE
  8. SAMSCA [Concomitant]
     Active Substance: TOLVAPTAN
     Dosage: 30 MG, QD
     Route: 065
     Dates: start: 201607
  9. RANEXA [Concomitant]
     Active Substance: RANOLAZINE
  10. BENAZEPRIL [Concomitant]
     Active Substance: BENAZEPRIL HYDROCHLORIDE
  11. NITROSTAT [Concomitant]
     Active Substance: NITROGLYCERIN
  12. ADCIRCA [Concomitant]
     Active Substance: TADALAFIL
  13. SAMSCA [Concomitant]
     Active Substance: TOLVAPTAN
  14. ESOMEPRAZOLE [Concomitant]
     Active Substance: ESOMEPRAZOLE
  15. ALPRAZOLAM. [Concomitant]
     Active Substance: ALPRAZOLAM
  16. CLARITIN [Concomitant]
     Active Substance: LORATADINE
  17. INCRUSE ELLIPTA [Concomitant]
     Active Substance: UMECLIDINIUM BROMIDE
  18. NORCO [Concomitant]
     Active Substance: ACETAMINOPHEN\HYDROCODONE BITARTRATE
  19. PROAIR HFA [Concomitant]
     Active Substance: ALBUTEROL SULFATE
  20. ZOLPIDEM [Concomitant]
     Active Substance: ZOLPIDEM\ZOLPIDEM TARTRATE
  21. DIGOXIN. [Concomitant]
     Active Substance: DIGOXIN
  22. OXYGEN. [Concomitant]
     Active Substance: OXYGEN

REACTIONS (1)
  - Ischaemia [Recovered/Resolved]

NARRATIVE: CASE EVENT DATE: 201801
